FAERS Safety Report 5728918-8 (Version None)
Quarter: 2008Q2

REPORT INFORMATION
  Report Type: 
  Country: None (occurrence: None)
  Receive Date: 20080430
  Receipt Date: 20080222
  Transmission Date: 20081010
  Serious: No
  Sender: FDA-Public Use
  Company Number: 2008PV034352

PATIENT
  Sex: Female

DRUGS (2)
  1. SYMLIN [Suspect]
     Indication: WEIGHT DECREASED
     Dosage: 120 MCG;BID;SC
     Route: 058
     Dates: start: 20080201
  2. SYNTHROID [Concomitant]

REACTIONS (1)
  - NAUSEA [None]
